FAERS Safety Report 22131561 (Version 1)
Quarter: 2023Q1

REPORT INFORMATION
  Report Type: Spontaneous
  Country: US (occurrence: US)
  Receive Date: 20230323
  Receipt Date: 20230323
  Transmission Date: 20230418
  Serious: No
  Sender: FDA-Public Use
  Company Number: US-ALLERGAN-2302202US

PATIENT
  Age: 47 Year
  Sex: Female
  Weight: 138 kg

DRUGS (1)
  1. INFED [Suspect]
     Active Substance: IRON DEXTRAN
     Indication: Iron deficiency anaemia
     Dosage: 7 MG, QD
     Route: 023
     Dates: start: 20230120, end: 20230120

REACTIONS (3)
  - Feeling hot [Recovered/Resolved]
  - Incorrect route of product administration [Unknown]
  - Dizziness [Recovered/Resolved]

NARRATIVE: CASE EVENT DATE: 20230120
